FAERS Safety Report 7274585-4 (Version None)
Quarter: 2011Q1

REPORT INFORMATION
  Report Type: 
  Country: None (occurrence: None)
  Receive Date: 20110204
  Receipt Date: 20110125
  Transmission Date: 20110831
  Serious: Yes (Hospitalization)
  Sender: FDA-Public Use
  Company Number: US-GENZYME-FABR-1001782

PATIENT

DRUGS (1)
  1. FABRAZYME [Suspect]
     Indication: FABRY'S DISEASE
     Dosage: 45 MG, Q2W
     Route: 042
     Dates: start: 20090606

REACTIONS (1)
  - CENTRAL NERVOUS SYSTEM LESION [None]
